FAERS Safety Report 9729638 (Version 1)
Quarter: 2013Q4

REPORT INFORMATION
  Report Type: Spontaneous
  Country: US (occurrence: US)
  Receive Date: 20131204
  Receipt Date: 20131204
  Transmission Date: 20140711
  Serious: Yes (Other)
  Sender: FDA-Public Use
  Company Number: US-PURDUE-USA-2013-0108711

PATIENT
  Sex: Female

DRUGS (2)
  1. INTERMEZZO [Suspect]
     Indication: PRODUCT USED FOR UNKNOWN INDICATION
     Route: 060
  2. AMBIEN [Suspect]
     Indication: PRODUCT USED FOR UNKNOWN INDICATION

REACTIONS (1)
  - Drug abuse [Unknown]
